FAERS Safety Report 6569321-0 (Version None)
Quarter: 2010Q1

REPORT INFORMATION
  Report Type: 
  Country: None (occurrence: None)
  Receive Date: 20100129
  Receipt Date: 20100111
  Transmission Date: 20100710
  Serious: Yes (Death)
  Sender: FDA-Public Use
  Company Number: 005679

PATIENT
  Age: 50 Year
  Sex: Male

DRUGS (5)
  1. ALPRAZOLAM [Suspect]
  2. ETHYLENE GLYCOL [Suspect]
  3. PHENOBARBITAL TAB [Concomitant]
  4. ZOLPIDEM [Concomitant]
  5. LORAZEPAM [Concomitant]

REACTIONS (1)
  - COMPLETED SUICIDE [None]
